FAERS Safety Report 24525794 (Version 1)
Quarter: 2024Q4

REPORT INFORMATION
  Report Type: Spontaneous
  Country: US (occurrence: US)
  Receive Date: 20241020
  Receipt Date: 20241020
  Transmission Date: 20250115
  Serious: No
  Sender: ELI LILLY AND COMPANY
  Company Number: US-ELI_LILLY_AND_COMPANY-US202410012243

PATIENT
  Age: 45 Year
  Sex: Female

DRUGS (1)
  1. VERZENIO [Suspect]
     Active Substance: ABEMACICLIB
     Indication: Malignant nipple neoplasm female
     Dosage: 100 MG, BID
     Route: 048

REACTIONS (5)
  - Breast pain [Unknown]
  - Axillary pain [Unknown]
  - Pyrexia [Unknown]
  - Asthenia [Unknown]
  - Nausea [Unknown]
